FAERS Safety Report 8308542-3 (Version None)
Quarter: 2012Q2

REPORT INFORMATION
  Report Type: 
  Country: None (occurrence: None)
  Receive Date: 20120420
  Receipt Date: 20120410
  Transmission Date: 20120825
  Serious: Yes (Hospitalization)
  Sender: FDA-Public Use
  Company Number: 2012-001443

PATIENT
  Age: 21 Year
  Sex: Male

DRUGS (6)
  1. METHYLPREDNISOLONE [Concomitant]
  2. MESALAMINE [Suspect]
     Indication: COLITIS ULCERATIVE
     Dosage: 4 G DAILY, ORAL
     Route: 048
     Dates: start: 20070101
  3. MESALAMINE [Suspect]
     Indication: COLITIS ULCERATIVE
     Dosage: RECTAL
     Route: 054
     Dates: start: 20070101
  4. CYCLOSPORINE [Concomitant]
  5. PREDNISONE TAB [Concomitant]
  6. SULFASALAZINE [Concomitant]

REACTIONS (7)
  - FACE OEDEMA [None]
  - DIARRHOEA HAEMORRHAGIC [None]
  - NEPHROTIC SYNDROME [None]
  - HYPOALBUMINAEMIA [None]
  - HYPERLIPIDAEMIA [None]
  - OEDEMA PERIPHERAL [None]
  - PROTEINURIA [None]
